FAERS Safety Report 10520881 (Version 1)
Quarter: 2014Q4

REPORT INFORMATION
  Report Type: Spontaneous
  Country: TR (occurrence: TR)
  Receive Date: 20141016
  Receipt Date: 20141016
  Transmission Date: 20150528
  Serious: Yes (Other)
  Sender: FDA-Public Use
  Company Number: PHHY2014TR131089

PATIENT
  Age: 80 Year
  Sex: Male

DRUGS (2)
  1. CEFUROXIME. [Suspect]
     Active Substance: CEFUROXIME
     Indication: PRODUCT USED FOR UNKNOWN INDICATION
     Dosage: 70 MG, UNK
     Route: 065
  2. CEFUROXIME. [Suspect]
     Active Substance: CEFUROXIME
     Indication: OFF LABEL USE

REACTIONS (7)
  - Corneal oedema [Unknown]
  - Optic atrophy [Unknown]
  - Visual acuity reduced [Unknown]
  - Corneal opacity [Unknown]
  - Accidental overdose [Unknown]
  - Retinal infarction [Unknown]
  - Retinal haemorrhage [Unknown]
